FAERS Safety Report 4724998-7 (Version None)
Quarter: 2005Q3

REPORT INFORMATION
  Report Type: 
  Country: None (occurrence: None)
  Receive Date: 20050726
  Receipt Date: 20050707
  Transmission Date: 20060218
  Serious: Yes (Other)
  Sender: FDA-Public Use
  Company Number: PHNU2005DE02477

PATIENT
  Age: 23 Year
  Sex: Male
  Weight: 59 kg

DRUGS (3)
  1. CLOZARIL [Suspect]
     Indication: PSYCHOTIC DISORDER
     Dosage: 475 MG/DAY
     Route: 048
  2. CLOZARIL [Suspect]
     Dosage: UNKNOWN
     Route: 048
     Dates: start: 20020101
  3. FLUVOXAMINE MALEATE [Suspect]
     Indication: SCHIZOAFFECTIVE DISORDER
     Dosage: 50 MG/DAY
     Route: 048
     Dates: start: 20050601, end: 20050701

REACTIONS (3)
  - DRUG INTERACTION [None]
  - DRUG LEVEL INCREASED [None]
  - PLEUROTHOTONUS [None]
